FAERS Safety Report 4728373-0 (Version None)
Quarter: 2005Q3

REPORT INFORMATION
  Report Type: 
  Country: None (occurrence: None)
  Receive Date: 20050729
  Receipt Date: 20050718
  Transmission Date: 20060218
  Serious: Yes (Other)
  Sender: FDA-Public Use
  Company Number: 2005GB01394

PATIENT
  Sex: Male
  Weight: 5.4 kg

DRUGS (5)
  1. QUETIAPINE [Suspect]
     Route: 064
     Dates: start: 20040507
  2. VENLAFAXINE [Suspect]
     Indication: DEPRESSION
     Route: 064
     Dates: start: 20050323
  3. VENLAFAXINE [Suspect]
     Indication: SCHIZOAFFECTIVE DISORDER
     Route: 064
     Dates: start: 20050323
  4. AMITRIPTYLINE HCL [Suspect]
     Route: 064
  5. OLANZAPINE [Suspect]
     Route: 064

REACTIONS (6)
  - AGITATION NEONATAL [None]
  - CAESAREAN SECTION [None]
  - DRUG EXPOSURE DURING PREGNANCY [None]
  - FEEDING DISORDER NEONATAL [None]
  - LARGE FOR DATES BABY [None]
  - PREMATURE BABY [None]
